FAERS Safety Report 20879989 (Version 1)
Quarter: 2022Q2

REPORT INFORMATION
  Report Type: Spontaneous
  Country: US (occurrence: US)
  Receive Date: 20220526
  Receipt Date: 20220526
  Transmission Date: 20220721
  Serious: No
  Sender: FDA-Public Use
  Company Number: US-RADIUS HEALTH INC.-2021US002959

PATIENT
  Sex: Female
  Weight: 59.41 kg

DRUGS (2)
  1. TYMLOS [Suspect]
     Active Substance: ABALOPARATIDE
     Indication: Osteoporotic fracture
     Dosage: 80 MCG, DAILY
     Route: 058
     Dates: start: 202106
  2. TYMLOS [Suspect]
     Active Substance: ABALOPARATIDE
     Dosage: 80 MCG, DAILY
     Route: 058
     Dates: start: 202106

REACTIONS (17)
  - Blood pressure increased [Unknown]
  - Abdominal tenderness [Unknown]
  - Urinary retention [Unknown]
  - Anxiety [Unknown]
  - Hypertension [Unknown]
  - Taste disorder [Unknown]
  - Illness [Unknown]
  - Insomnia [Unknown]
  - Heart rate increased [Unknown]
  - Dizziness [Unknown]
  - Abdominal distension [Unknown]
  - Bone pain [Unknown]
  - Arthralgia [Unknown]
  - Headache [Unknown]
  - Nausea [Unknown]
  - Fatigue [Unknown]
  - Product dose omission issue [Unknown]
